FAERS Safety Report 8174823-X (Version None)
Quarter: 2012Q1

REPORT INFORMATION
  Report Type: 
  Country: None (occurrence: None)
  Receive Date: 20120229
  Receipt Date: 20120217
  Transmission Date: 20120608
  Serious: Yes (Other)
  Sender: FDA-Public Use
  Company Number: PHFR2011GB05404

PATIENT
  Sex: Female

DRUGS (3)
  1. AMLODIPINE [Concomitant]
     Indication: BLOOD PRESSURE
     Dosage: 5 MG, DAILY
     Route: 048
     Dates: start: 20090913
  2. COLOFAC [Concomitant]
     Indication: IRRITABLE BOWEL SYNDROME
     Dosage: 200 MG, BID
     Route: 048
     Dates: start: 20071016
  3. EXELON [Suspect]
     Indication: DEMENTIA ALZHEIMER'S TYPE
     Dosage: 1 DF, QD
     Route: 062
     Dates: start: 20110601, end: 20110901

REACTIONS (1)
  - CONFUSIONAL STATE [None]
